FAERS Safety Report 9609735 (Version 2)
Quarter: 2014Q2

REPORT INFORMATION
  Report Type: Report from Study
  Country: TW (occurrence: TW)
  Receive Date: 20131009
  Receipt Date: 20140408
  Transmission Date: 20141212
  Serious: No
  Sender: FDA-Public Use
  Company Number: PHHY2012TW120554

PATIENT
  Age: 23 Year
  Sex: Male

DRUGS (24)
  1. AMN107 [Suspect]
     Dosage: UNK UKN, UNK
     Dates: start: 20110630, end: 20120821
  2. AMN107 [Suspect]
     Dosage: UNK UKN, UNK
     Dates: start: 20120822, end: 20120918
  3. AMN107 [Suspect]
     Dosage: UNK UKN, UNK
     Dates: start: 20120919, end: 20121204
  4. AMN107 [Suspect]
     Dosage: UNK UKN, UNK
     Dates: start: 20121209
  5. LOPERAMIDE [Concomitant]
     Indication: IRRITABLE BOWEL SYNDROME
     Dosage: UNK UKN, UNK
     Dates: start: 20110602, end: 20110615
  6. CATAFLAM [Concomitant]
     Indication: PAIN
     Dosage: UNK UKN, UNK
     Dates: start: 20120209, end: 20120213
  7. CATAFLAM [Concomitant]
     Indication: DYSURIA
     Dosage: UNK UKN, UNK
     Dates: start: 20120331, end: 20120407
  8. SECORIN [Concomitant]
     Indication: ANXIETY
     Dosage: UNK UKN, UNK
     Dates: start: 20120209, end: 20120213
  9. DEXALTIN [Concomitant]
     Indication: MOUTH ULCERATION
     Dosage: UNK UKN, UNK
     Dates: start: 20120502, end: 20120516
  10. DEXALTIN [Concomitant]
     Dosage: UNK UKN, UNK
     Dates: start: 20120530, end: 20120613
  11. MELOXICAM [Concomitant]
     Indication: UPPER RESPIRATORY TRACT INFECTION
     Dosage: UNK UKN, UNK
     Dates: start: 20121016, end: 20121019
  12. MEDICON                            /02167701/ [Concomitant]
     Indication: UPPER RESPIRATORY TRACT INFECTION
     Dosage: UNK UKN, UNK
     Dates: start: 20121016, end: 20121019
  13. MEFENAMIC [Concomitant]
     Indication: UPPER RESPIRATORY TRACT INFECTION
     Dosage: UNK UKN, UNK
     Dates: start: 20121016, end: 20121019
  14. FAMOTIDINE [Concomitant]
     Indication: UPPER RESPIRATORY TRACT INFECTION
     Dosage: UNK UKN, UNK
     Dates: start: 20121016, end: 20121019
  15. DENOSIN [Concomitant]
     Indication: UPPER RESPIRATORY TRACT INFECTION
     Dosage: UNK UKN, UNK
     Dates: start: 20121016, end: 20121019
  16. THIAMPHENICOL [Concomitant]
     Indication: DYSURIA
     Dosage: UNK UKN, UNK
     Dates: start: 20120331, end: 20120407
  17. ACTEIN [Concomitant]
     Indication: TRACHEITIS
     Dosage: UNK UKN, UNK
     Dates: start: 20130508, end: 20130513
  18. BROWN MIXTURE                      /01682301/ [Concomitant]
     Indication: TRACHEITIS
     Dosage: UNK UKN, UNK
     Dates: start: 20130508, end: 20130513
  19. BUCLIZINE [Concomitant]
     Indication: ECZEMA
     Dosage: UNK UKN, UNK
     Dates: start: 20130624, end: 20130708
  20. BUCLIZINE [Concomitant]
     Indication: FOLLICULITIS
  21. DOXYCYCLINE [Concomitant]
     Indication: ECZEMA
     Dosage: UNK UKN, UNK
     Dates: start: 20130624, end: 20130708
  22. DOXYCYCLINE [Concomitant]
     Indication: FOLLICULITIS
  23. TRICODEX [Concomitant]
     Indication: ECZEMA
     Dosage: UNK UKN, UNK
     Dates: start: 20130624, end: 20130708
  24. TRICODEX [Concomitant]
     Indication: FOLLICULITIS

REACTIONS (3)
  - Gastrointestinal pain [Unknown]
  - Hyperbilirubinaemia [Unknown]
  - Abdominal pain [Unknown]
